FAERS Safety Report 14294180 (Version 1)
Quarter: 2017Q4

REPORT INFORMATION
  Report Type: Spontaneous
  Country: MY (occurrence: MY)
  Receive Date: 20171217
  Receipt Date: 20171217
  Transmission Date: 20180321
  Serious: Yes (Hospitalization)
  Sender: FDA-Public Use
  Company Number: MY-ASTRAZENECA-2017SF26850

PATIENT
  Sex: Male
  Weight: 85 kg

DRUGS (2)
  1. BRILINTA [Suspect]
     Active Substance: TICAGRELOR
     Indication: MYOCARDIAL ISCHAEMIA
     Route: 048
  2. BRILINTA [Suspect]
     Active Substance: TICAGRELOR
     Indication: MYOCARDIAL ISCHAEMIA
     Route: 048
     Dates: start: 20170913, end: 20170918

REACTIONS (4)
  - Swollen tongue [Recovering/Resolving]
  - Ageusia [Recovering/Resolving]
  - Tongue erythema [Recovering/Resolving]
  - Decreased appetite [Recovering/Resolving]
